FAERS Safety Report 14136128 (Version 3)
Quarter: 2019Q1

REPORT INFORMATION
  Report Type: Report from Study
  Country: US (occurrence: US)
  Receive Date: 20171027
  Receipt Date: 20190315
  Transmission Date: 20190417
  Serious: Yes (Other)
  Sender: FDA-Public Use
  Company Number: US-AMGEN-USASP2017133669

PATIENT
  Age: 75 Year
  Sex: Female
  Weight: 79 kg

DRUGS (2)
  1. REPATHA [Suspect]
     Active Substance: EVOLOCUMAB
     Indication: BLOOD CHOLESTEROL INCREASED
  2. REPATHA [Suspect]
     Active Substance: EVOLOCUMAB
     Indication: HYPERCHOLESTEROLAEMIA
     Dosage: 140 MILLIGRAM PER MILLILITRE, Q2WK
     Route: 065
     Dates: start: 20151203

REACTIONS (10)
  - Neuropathy peripheral [Unknown]
  - Sputum discoloured [Unknown]
  - Productive cough [Unknown]
  - Muscle spasms [Unknown]
  - Blood pressure increased [Unknown]
  - Feeling abnormal [Unknown]
  - Contusion [Unknown]
  - Oropharyngeal pain [Unknown]
  - Vomiting [Unknown]
  - Wrong technique in product usage process [Unknown]

NARRATIVE: CASE EVENT DATE: 201708
